FAERS Safety Report 16836329 (Version 3)
Quarter: 2019Q4

REPORT INFORMATION
  Report Type: Report from Study
  Country: IT (occurrence: IT)
  Receive Date: 20190921
  Receipt Date: 20191207
  Transmission Date: 20200122
  Serious: Yes (Other)
  Sender: FDA-Public Use
  Company Number: IT-ACCORD-155403

PATIENT
  Age: 23 Year
  Sex: Female

DRUGS (6)
  1. NOAN [Interacting]
     Active Substance: DIAZEPAM
     Indication: SOMATIC SYMPTOM DISORDER
     Route: 048
     Dates: start: 20190710
  2. CLOPIXOL [Suspect]
     Active Substance: ZUCLOPENTHIXOL
     Indication: SCHIZOPHRENIA
     Dosage: STRENGTH: 10 MG
     Route: 048
     Dates: start: 20190710
  3. VALDORM [FLURAZEPAM MONOHYDROCHLORIDE] [Interacting]
     Active Substance: FLURAZEPAM MONOHYDROCHLORIDE
     Indication: SLEEP DISORDER DUE TO GENERAL MEDICAL CONDITION, INSOMNIA TYPE
     Dosage: STRENGTH: 30 MG
     Route: 048
     Dates: start: 20190710
  4. BISOPROLOL [Concomitant]
     Active Substance: BISOPROLOL
     Route: 048
     Dates: start: 20190710
  5. CLOPIXOL [Suspect]
     Active Substance: ZUCLOPENTHIXOL
     Indication: SCHIZOPHRENIA
     Dosage: STRENGTH: 200 MG / ML PROLONGED RELEASE INJECTION SOLUTION FOR USE
     Route: 030
     Dates: start: 20190710
  6. CLOZAPINE. [Suspect]
     Active Substance: CLOZAPINE
     Indication: SCHIZOPHRENIA
     Route: 048
     Dates: start: 20190710, end: 20190819

REACTIONS (3)
  - Presyncope [Recovered/Resolved]
  - Drug interaction [Unknown]
  - Visual impairment [Recovered/Resolved]

NARRATIVE: CASE EVENT DATE: 20190809
